FAERS Safety Report 17869975 (Version 1)
Quarter: 2020Q2

REPORT INFORMATION
  Report Type: Spontaneous
  Country: GB (occurrence: GB)
  Receive Date: 20200608
  Receipt Date: 20200608
  Transmission Date: 20200714
  Serious: Yes (Other)
  Sender: FDA-Public Use
  Company Number: GB-MYLANLABS-2020M1054282

PATIENT

DRUGS (1)
  1. CLOZARIL [Suspect]
     Active Substance: CLOZAPINE
     Indication: PRODUCT USED FOR UNKNOWN INDICATION
     Dosage: 125 MILLIGRAM, QD

REACTIONS (6)
  - Coma [Unknown]
  - Weight increased [Unknown]
  - Drug intolerance [Unknown]
  - Post-traumatic stress disorder [Unknown]
  - Suicidal behaviour [Unknown]
  - Antipsychotic drug level below therapeutic [Unknown]
